FAERS Safety Report 4848508-9 (Version None)
Quarter: 2005Q4

REPORT INFORMATION
  Report Type: 
  Country: None (occurrence: None)
  Receive Date: 20051115
  Receipt Date: 20050901
  Transmission Date: 20060501
  Serious: No
  Sender: FDA-Public Use
  Company Number: S05-USA-04219-01

PATIENT
  Age: 62 Year
  Sex: Male

DRUGS (2)
  1. NAMENDA [Suspect]
     Dates: start: 20040401, end: 20050801
  2. ACETYLCHOLINESTERASE INHIBITOR [Concomitant]

REACTIONS (2)
  - AGITATION [None]
  - NERVOUSNESS [None]
